FAERS Safety Report 24340287 (Version 2)
Quarter: 2024Q3

REPORT INFORMATION
  Report Type: Spontaneous
  Country: JP (occurrence: JP)
  Receive Date: 20240919
  Receipt Date: 20240926
  Transmission Date: 20241016
  Serious: Yes (Other)
  Sender: BAYER
  Company Number: JP-BAYER-2024A133555

PATIENT
  Age: 8 Decade
  Sex: Male

DRUGS (1)
  1. STIVARGA [Suspect]
     Active Substance: REGORAFENIB MONOHYDRATE
     Indication: Colon cancer recurrent
     Dosage: UNK
     Route: 048
     Dates: start: 202405

REACTIONS (2)
  - Blood creatinine increased [None]
  - COVID-19 [None]

NARRATIVE: CASE EVENT DATE: 20240907
